FAERS Safety Report 24453356 (Version 2)
Quarter: 2024Q4

REPORT INFORMATION
  Report Type: Report from Study
  Country: US (occurrence: US)
  Receive Date: 20241017
  Receipt Date: 20241018
  Transmission Date: 20250115
  Serious: No
  Sender: ROCHE
  Company Number: US-ROCHE-3340733

PATIENT
  Age: 47 Year
  Sex: Female

DRUGS (9)
  1. RITUXAN [Suspect]
     Active Substance: RITUXIMAB
     Indication: Multiple sclerosis
     Dosage: THAN EVERY 16 WEEKS
     Route: 041
     Dates: start: 20231213
  2. RITUXAN [Suspect]
     Active Substance: RITUXIMAB
     Indication: Iridocyclitis
  3. CELLCEPT [Suspect]
     Active Substance: MYCOPHENOLATE MOFETIL
     Indication: Product used for unknown indication
     Route: 048
  4. ALBUTEROL [Concomitant]
     Active Substance: ALBUTEROL
  5. WELLBUTRIN [Concomitant]
     Active Substance: BUPROPION HYDROCHLORIDE
  6. VALIUM [Concomitant]
     Active Substance: DIAZEPAM
  7. FERROUS SULFATE [Concomitant]
     Active Substance: FERROUS SULFATE
  8. MOBIC [Concomitant]
     Active Substance: MELOXICAM
  9. AUBAGIO [Concomitant]
     Active Substance: TERIFLUNOMIDE

REACTIONS (3)
  - Off label use [Unknown]
  - Oral pain [Unknown]
  - Oral herpes [Unknown]
